FAERS Safety Report 11783291 (Version 2)
Quarter: 2015Q4

REPORT INFORMATION
  Report Type: Spontaneous
  Country: JP (occurrence: JP)
  Receive Date: 20151127
  Receipt Date: 20151214
  Transmission Date: 20160305
  Serious: Yes (Hospitalization)
  Sender: FDA-Public Use
  Company Number: PHJP2015JP020753

PATIENT
  Age: 65 Year
  Sex: Female

DRUGS (1)
  1. REVOLADE TAB [Suspect]
     Active Substance: ELTROMBOPAG
     Indication: IMMUNE THROMBOCYTOPENIC PURPURA
     Dosage: 12.5 MG, QD
     Route: 048
     Dates: start: 20151016, end: 20151118

REACTIONS (2)
  - Deep vein thrombosis [Recovering/Resolving]
  - Oedema peripheral [Unknown]

NARRATIVE: CASE EVENT DATE: 20151118
